FAERS Safety Report 13468896 (Version 1)
Quarter: 2017Q2

REPORT INFORMATION
  Report Type: Spontaneous
  Country: FR (occurrence: FR)
  Receive Date: 20170421
  Receipt Date: 20170421
  Transmission Date: 20170830
  Serious: Yes (Hospitalization)
  Sender: FDA-Public Use
  Company Number: FR-PFIZER INC-2017171801

PATIENT
  Age: 36 Year
  Sex: Female

DRUGS (4)
  1. CYTOTEC [Suspect]
     Active Substance: MISOPROSTOL
     Indication: ABORTION INDUCED
     Dosage: 400 UG, DAILY
     Route: 060
     Dates: start: 20170329, end: 20170329
  2. IBUPROFENE [Suspect]
     Active Substance: IBUPROFEN
     Dosage: 400 MG, DAILY
     Route: 048
     Dates: start: 20170329, end: 20170329
  3. CYTOTEC [Suspect]
     Active Substance: MISOPROSTOL
     Dosage: 400 UG, DAILY
     Route: 060
     Dates: start: 20170329, end: 20170329
  4. IBUPROFENE [Suspect]
     Active Substance: IBUPROFEN
     Dosage: 400 MG, DAILY
     Route: 048
     Dates: start: 20170329, end: 20170329

REACTIONS (5)
  - Diarrhoea [Recovered/Resolved]
  - Tongue oedema [Recovered/Resolved]
  - Product use in unapproved indication [Recovered/Resolved]
  - Laryngeal discomfort [Recovered/Resolved]
  - Rash [Recovered/Resolved]

NARRATIVE: CASE EVENT DATE: 20170329
